FAERS Safety Report 25106513 (Version 9)
Quarter: 2025Q2

REPORT INFORMATION
  Report Type: Report from Study
  Country: CO (occurrence: CO)
  Receive Date: 20250321
  Receipt Date: 20250620
  Transmission Date: 20250717
  Serious: Yes (Other)
  Sender: HELSINN HEALTHCARE
  Company Number: CO-HBP-2024CO030665

PATIENT
  Age: 39 Year
  Sex: Female
  Weight: 61 kg

DRUGS (10)
  1. MECHLORETHAMINE HYDROCHLORIDE [Suspect]
     Active Substance: MECHLORETHAMINE HYDROCHLORIDE
     Indication: Cutaneous T-cell lymphoma stage I
     Dosage: 1 DOSAGE FORM, QD
     Route: 061
     Dates: start: 20240226
  2. MECHLORETHAMINE HYDROCHLORIDE [Suspect]
     Active Substance: MECHLORETHAMINE HYDROCHLORIDE
     Dosage: 1 DOSAGE FORM, QOD
     Route: 061
     Dates: start: 20240430
  3. MECHLORETHAMINE HYDROCHLORIDE [Suspect]
     Active Substance: MECHLORETHAMINE HYDROCHLORIDE
     Dosage: UNK, QD
     Route: 061
     Dates: start: 20240813
  4. ESZOPICLONE [Suspect]
     Active Substance: ESZOPICLONE
     Indication: Mixed anxiety and depressive disorder
     Dosage: 1 TABLET EVERY 24 HOURS
     Route: 065
  5. DULOXETINE HYDROCHLORIDE [Suspect]
     Active Substance: DULOXETINE HYDROCHLORIDE
     Indication: Mixed anxiety and depressive disorder
     Dosage: 1 TABLET IN THE MORNING AND 1 IN THE AFTERNOON
     Route: 065
  6. ESCITALOPRAM OXALATE [Concomitant]
     Active Substance: ESCITALOPRAM OXALATE
     Indication: Anxiety disorder
     Dosage: 10 MILLIGRAM, QD
  7. QUETIAPINE FUMARATE [Concomitant]
     Active Substance: QUETIAPINE FUMARATE
     Indication: Mixed anxiety and depressive disorder
     Dosage: HALF TABLET, QD
     Route: 065
  8. SERTRALINE HYDROCHLORIDE [Concomitant]
     Active Substance: SERTRALINE HYDROCHLORIDE
     Indication: Mixed anxiety and depressive disorder
     Dosage: 1 TABLET, QD
     Route: 065
  9. ACETAMINOPHEN [Concomitant]
     Active Substance: ACETAMINOPHEN
     Dosage: 2 DOSAGE FORM, Q8H
  10. CEPHALEXIN [Concomitant]
     Active Substance: CEPHALEXIN
     Dosage: 1 DOSAGE FORM, Q6H

REACTIONS (20)
  - Pyelocaliectasis [Unknown]
  - Fibrous histiocytoma [Recovering/Resolving]
  - Dysgeusia [Recovering/Resolving]
  - Application site discolouration [Recovering/Resolving]
  - Papule [Not Recovered/Not Resolved]
  - Skin exfoliation [Not Recovered/Not Resolved]
  - Pain of skin [Unknown]
  - Skin burning sensation [Not Recovered/Not Resolved]
  - Application site pain [Recovered/Resolved]
  - Application site warmth [Recovered/Resolved]
  - Pain [Not Recovered/Not Resolved]
  - Somnolence [Recovered/Resolved]
  - Treatment noncompliance [Unknown]
  - Therapy interrupted [Unknown]
  - Accidental exposure to product [Unknown]
  - Wrong technique in product usage process [Unknown]
  - Arthropathy [Unknown]
  - Osteoarthritis [Unknown]
  - Erythema [Unknown]
  - Pruritus [Not Recovered/Not Resolved]

NARRATIVE: CASE EVENT DATE: 20240404
